FAERS Safety Report 7753358-X (Version None)
Quarter: 2011Q3

REPORT INFORMATION
  Report Type: 
  Country: None (occurrence: None)
  Receive Date: 20110913
  Receipt Date: 20110831
  Transmission Date: 20111222
  Serious: Yes (Hospitalization, Disabling)
  Sender: FDA-Public Use
  Company Number: 1000022410

PATIENT
  Age: 81 Year
  Sex: Female

DRUGS (5)
  1. RASILEZ (ALISKIREN) (ALISKIREN) [Concomitant]
  2. LOSARTAN POTASSIUM AND HYDROCHLOROTHIAZIDE [Suspect]
     Indication: HYPERTENSION
     Dosage: 1 IN 1 D, ORAL
     Route: 048
     Dates: end: 20110717
  3. MERISLON (BETAHISTINE HYDROCHLORIDE) (BETAHISTINE HYDROCHLORIDE) [Concomitant]
  4. MEMANTINE HYDROCHLORIDE [Suspect]
     Indication: DEMENTIA
     Dosage: 10 MG (10 MG, 1 IN 1 D), ORAL
     Route: 048
     Dates: start: 20110705, end: 20110717
  5. MEMANTINE HYDROCHLORIDE [Suspect]
     Indication: DEMENTIA
     Dosage: 5 MG (5 MG, 1 IN 1 D), ORAL
     Route: 048
     Dates: start: 20110622, end: 20110704

REACTIONS (3)
  - DIZZINESS [None]
  - INAPPROPRIATE ANTIDIURETIC HORMONE SECRETION [None]
  - NAUSEA [None]
